FAERS Safety Report 9177873 (Version 2)
Quarter: 2013Q1

REPORT INFORMATION
  Report Type: Spontaneous
  Country: US (occurrence: US)
  Receive Date: 20130321
  Receipt Date: 20130322
  Transmission Date: 20140127
  Serious: Yes (Other)
  Sender: FDA-Public Use
  Company Number: US-BAYER-2013-033225

PATIENT
  Age: 27 Year
  Sex: Male
  Weight: 68.03 kg

DRUGS (2)
  1. ALEVE [Suspect]
     Indication: TOOTHACHE
     Dosage: 3-6 TAB, QD
     Route: 048
     Dates: start: 2013, end: 20130314
  2. ALEVE [Suspect]
     Indication: TOOTHACHE
     Dosage: 660 MG, HS
     Route: 048
     Dates: start: 20130313, end: 20130313

REACTIONS (8)
  - Haemorrhage [Recovered/Resolved]
  - Nausea [Recovered/Resolved]
  - Vomiting [Recovered/Resolved]
  - Abdominal pain upper [Recovered/Resolved]
  - Incorrect drug administration duration [None]
  - Incorrect dose administered [None]
  - Inappropriate schedule of drug administration [None]
  - Drug ineffective [None]
